FAERS Safety Report 8211161-0 (Version None)
Quarter: 2012Q1

REPORT INFORMATION
  Report Type: 
  Country: None (occurrence: None)
  Receive Date: 20120315
  Receipt Date: 20120305
  Transmission Date: 20120608
  Serious: Yes (Hospitalization, Other)
  Sender: FDA-Public Use
  Company Number: US-JNJFOC-20120101095

PATIENT
  Sex: Female

DRUGS (9)
  1. RISPERDAL CONSTA [Suspect]
     Indication: SCHIZOAFFECTIVE DISORDER
     Route: 030
     Dates: start: 20111104, end: 20111118
  2. SEROQUEL [Concomitant]
     Indication: SCHIZOAFFECTIVE DISORDER
     Route: 065
     Dates: start: 20111226, end: 20111230
  3. AN UNKNOWN MEDICATION [Concomitant]
     Indication: CONSTIPATION
     Dosage: 30 MG PRN
     Route: 048
     Dates: start: 20111226, end: 20111230
  4. RISPERDAL CONSTA [Suspect]
     Route: 030
     Dates: start: 20111130, end: 20120129
  5. SEROQUEL [Concomitant]
     Indication: AGITATION
     Route: 065
     Dates: start: 20111226, end: 20111230
  6. TYLENOL [Concomitant]
     Indication: PAIN
     Dosage: 650 MG EVERY 4 HOURS PRN
     Route: 065
  7. MOTRIN [Concomitant]
     Indication: PAIN
     Route: 065
     Dates: start: 20111223, end: 20111228
  8. MAGNESIUM HYDROXIDE TAB [Concomitant]
     Indication: DYSPEPSIA
     Dosage: 30 MG EVERY 4 HOURS PRN
     Route: 065
     Dates: start: 20111226, end: 20111230
  9. MAGNESIUM HYDROXIDE TAB [Concomitant]
     Dosage: 30 MG EVERY 4 HOURS PRN
     Route: 065
     Dates: start: 20111226, end: 20111230

REACTIONS (4)
  - PRODUCT QUALITY ISSUE [None]
  - SCHIZOPHRENIA [None]
  - LIGAMENT DISORDER [None]
  - DRUG ADMINISTRATION ERROR [None]
